FAERS Safety Report 6677989-3 (Version None)
Quarter: 2010Q2

REPORT INFORMATION
  Report Type: 
  Country: None (occurrence: None)
  Receive Date: 20100412
  Receipt Date: 20100401
  Transmission Date: 20101027
  Serious: Yes (Hospitalization)
  Sender: FDA-Public Use
  Company Number: FR-BAXTER-2010BH008718

PATIENT
  Age: 34 Year
  Sex: Female

DRUGS (8)
  1. ENDOXAN BAXTER [Suspect]
     Indication: BREAST CANCER
     Route: 042
     Dates: start: 20100223, end: 20100223
  2. KYTRIL [Suspect]
     Indication: PREMEDICATION
     Route: 042
  3. EPIRUBICIN HYDROCHLORIDE [Suspect]
     Indication: BREAST CANCER
     Route: 042
     Dates: start: 20100223, end: 20100223
  4. FLUOROURACIL [Suspect]
     Indication: BREAST CANCER
     Route: 042
     Dates: start: 20100223, end: 20100223
  5. METHYLPREDNISOLONE [Suspect]
     Indication: BREAST CANCER
     Route: 042
     Dates: start: 20100223, end: 20100223
  6. FOSAPREPITANT [Concomitant]
     Indication: PREMEDICATION
     Route: 042
     Dates: start: 20100223, end: 20100223
  7. APREPITANT [Concomitant]
     Indication: PREMEDICATION
     Route: 048
     Dates: start: 20100224, end: 20100225
  8. ZOPHREN [Concomitant]
     Indication: PREMEDICATION
     Route: 065

REACTIONS (6)
  - EYELID PTOSIS [None]
  - HEADACHE [None]
  - IIIRD NERVE PARALYSIS [None]
  - MYDRIASIS [None]
  - NAUSEA [None]
  - TINNITUS [None]
